FAERS Safety Report 9214840 (Version 1)
Quarter: 2013Q2

REPORT INFORMATION
  Report Type: Report from Study
  Country: CN (occurrence: CN)
  Receive Date: 20130405
  Receipt Date: 20130405
  Transmission Date: 20140414
  Serious: Yes (Hospitalization)
  Sender: FDA-Public Use
  Company Number: CN-GLAXOSMITHKLINE-A0866358A

PATIENT
  Age: 47 Year
  Sex: Female
  Weight: 60 kg

DRUGS (15)
  1. ELTROMBOPAG [Suspect]
     Indication: IDIOPATHIC THROMBOCYTOPENIC PURPURA
     Route: 048
     Dates: start: 20080215
  2. EUTHYROX [Concomitant]
     Indication: SUPPLEMENTATION THERAPY
     Route: 048
     Dates: start: 20100611
  3. ATROPINE [Concomitant]
     Dosage: 500MG SINGLE DOSE
     Route: 030
     Dates: start: 20100611, end: 20100611
  4. TRANEXAMIC ACID [Concomitant]
     Indication: HAEMORRHAGE PROPHYLAXIS
     Dosage: 1G PER DAY
     Route: 042
     Dates: start: 20100611, end: 20100613
  5. OMEPRAZOLE [Concomitant]
     Indication: PROPHYLAXIS
     Dosage: 40MG PER DAY
     Route: 042
     Dates: start: 20100611, end: 20100613
  6. GLYCYRRHIZIN [Concomitant]
     Indication: SUPPLEMENTATION THERAPY
     Dosage: 120MG PER DAY
     Route: 042
     Dates: start: 20100611, end: 20100613
  7. VITAMIN C [Concomitant]
     Indication: SUPPLEMENTATION THERAPY
     Dosage: 2G SINGLE DOSE
     Route: 042
     Dates: start: 20100611, end: 20100611
  8. RIBOFLAVIN [Concomitant]
     Indication: SUPPLEMENTATION THERAPY
     Dosage: 15MG SINGLE DOSE
     Route: 042
     Dates: start: 20100611, end: 20100611
  9. CEPHALOSPORINS [Concomitant]
     Indication: INFECTION PROPHYLAXIS
     Dosage: 1G TWICE PER DAY
     Route: 042
     Dates: start: 20100611, end: 20100614
  10. PHENOBARBITAL [Concomitant]
     Dosage: 100MG SINGLE DOSE
     Route: 030
     Dates: start: 20100611, end: 20100611
  11. AMBROXOL [Concomitant]
     Indication: INCREASED UPPER AIRWAY SECRETION
     Dosage: 60MG PER DAY
     Route: 042
     Dates: start: 20100611, end: 20100614
  12. SODIUM PHOSPHATE [Concomitant]
     Indication: SUPPLEMENTATION THERAPY
     Dosage: 15MG SINGLE DOSE
     Route: 042
     Dates: start: 20100611, end: 20100611
  13. AMINO ACIDS [Concomitant]
     Indication: SUPPLEMENTATION THERAPY
     Dosage: 250MG PER DAY
     Route: 042
     Dates: start: 20100611, end: 20100613
  14. CALCIUM GLUCONATE [Concomitant]
     Indication: SUPPLEMENTATION THERAPY
     Dosage: 500MG THREE TIMES PER DAY
     Route: 048
     Dates: start: 20100611, end: 20100618
  15. PULMICORT [Concomitant]
     Indication: INCREASED UPPER AIRWAY SECRETION
     Dosage: 1MG TWICE PER DAY
     Route: 055
     Dates: start: 20100611, end: 20100613

REACTIONS (1)
  - Papillary thyroid cancer [Recovered/Resolved]
